FAERS Safety Report 10408064 (Version 1)
Quarter: 2014Q3

REPORT INFORMATION
  Report Type: Other
  Country: DE (occurrence: DE)
  Receive Date: 20140825
  Receipt Date: 20140825
  Transmission Date: 20150326
  Serious: Yes (Congenital Anomaly)
  Sender: FDA-Public Use
  Company Number: DE-MYLAN-2014M1001629

PATIENT

DRUGS (3)
  1. CITALOPRAM [Suspect]
     Active Substance: CITALOPRAM HYDROBROMIDE
     Indication: DEPRESSION
     Dosage: 40 [MG/D ],  DURING 0. - 22. GESTATIONAL WEEK
     Route: 064
     Dates: start: 20131029, end: 20140401
  2. FEMIBION [Concomitant]
     Active Substance: VITAMINS
     Indication: PROPHYLAXIS OF NEURAL TUBE DEFECT
     Dosage: DURING 2.3. - 22 GESTATIONAL WEEK
     Route: 064
  3. CYTOTEC [Concomitant]
     Active Substance: MISOPROSTOL
     Indication: ABORTION INDUCED
     Dosage: DURING 21.6. - 21.6 GESTATIONAL WEEK
     Route: 064
     Dates: start: 20140331, end: 20140331

REACTIONS (5)
  - Talipes [Not Recovered/Not Resolved]
  - Foetal exposure during pregnancy [Not Recovered/Not Resolved]
  - Cerebral ventricle dilatation [Not Recovered/Not Resolved]
  - Spina bifida [Not Recovered/Not Resolved]
  - Arnold-Chiari malformation [Not Recovered/Not Resolved]
